FAERS Safety Report 16960326 (Version 10)
Quarter: 2022Q4

REPORT INFORMATION
  Report Type: Spontaneous
  Country: US (occurrence: US)
  Receive Date: 20191025
  Receipt Date: 20221123
  Transmission Date: 20230113
  Serious: No
  Sender: FDA-Public Use
  Company Number: US-PFIZER INC-2019458667

PATIENT
  Age: 62 Year
  Sex: Female
  Weight: 67 kg

DRUGS (21)
  1. XELJANZ [Suspect]
     Active Substance: TOFACITINIB CITRATE
     Indication: Colitis ulcerative
     Dosage: 10 MG, 2X/DAY
     Route: 048
     Dates: start: 201908, end: 20191029
  2. XELJANZ [Suspect]
     Active Substance: TOFACITINIB CITRATE
     Indication: Colitis microscopic
     Dosage: 5 MG, 2X/DAY
     Route: 048
     Dates: start: 20191030
  3. LOPERAMIDE HYDROCHLORIDE [Suspect]
     Active Substance: LOPERAMIDE HYDROCHLORIDE
     Dosage: 2 MG
  4. LORATADINE [Suspect]
     Active Substance: LORATADINE
     Dosage: 5 MG, 2X/DAY (TAKE 1 {TBL} EVERY 12 HOURS)
     Route: 048
  5. PSEUDOEPHEDRINE [Suspect]
     Active Substance: PSEUDOEPHEDRINE
     Dosage: 120 MG, 2X/DAY (TAKE 1 {TBL} EVERY 12 HOURS)
     Route: 048
  6. LUMIGAN [Suspect]
     Active Substance: BIMATOPROST
     Dosage: 1 DROP
  7. CALCIUM\CHOLECALCIFEROL [Concomitant]
     Active Substance: CALCIUM\CHOLECALCIFEROL
     Indication: Bone disorder
     Dosage: 2 DF, DAILY
     Dates: start: 2018
  8. IRON [Concomitant]
     Active Substance: IRON
     Indication: Anaemia
     Dosage: 18 MG
     Dates: start: 2019
  9. IRON [Concomitant]
     Active Substance: IRON
     Dosage: 65 MG (TAKE 1 TABLET BY MOUTH EVERY DAY)
     Route: 048
  10. COPAXONE [Concomitant]
     Active Substance: GLATIRAMER ACETATE
     Indication: Multiple sclerosis
     Dosage: UNK (3X PER WEEK)
     Dates: start: 201409
  11. CITALOPRAM HYDROBROMIDE [Concomitant]
     Active Substance: CITALOPRAM HYDROBROMIDE
     Indication: Anxiety
     Dosage: 20 MG, 1X/DAY (1 TAB ORALLY IN AM DAILY)
     Route: 048
     Dates: start: 2014
  12. CITALOPRAM HYDROBROMIDE [Concomitant]
     Active Substance: CITALOPRAM HYDROBROMIDE
     Dosage: 20 MG, 1X/DAY (TAKE 1.5 TABLETS BY MOUTH EVERYDAY)
     Route: 048
  13. SIMVASTATIN [Concomitant]
     Active Substance: SIMVASTATIN
     Indication: Blood cholesterol
     Dosage: 0.5 DF, DAILY
     Route: 048
     Dates: start: 2010
  14. SIMVASTATIN [Concomitant]
     Active Substance: SIMVASTATIN
     Dosage: 40 MG DAILY, (TAKE 1/2 TABLET BY MOUTH DAILY)
     Route: 048
  15. PREVIDENT 5000 PLUS SPEARMINT [Concomitant]
     Active Substance: SODIUM FLUORIDE
     Dosage: UNK (1-2 TIMES PER DAY)
     Dates: start: 2018
  16. PREVIDENT 5000 PLUS SPEARMINT [Concomitant]
     Active Substance: SODIUM FLUORIDE
     Dosage: USE TO BRUSH FOR AT LEAST 1 MINUTE
  17. FLUCONAZOLE [Concomitant]
     Active Substance: FLUCONAZOLE
     Indication: Immunisation
     Dosage: UNK
     Dates: start: 20191031
  18. BENADRYL [Concomitant]
     Active Substance: DIPHENHYDRAMINE HYDROCHLORIDE
     Dosage: 25 MG
  19. PREVIDENT [Concomitant]
     Active Substance: SODIUM FLUORIDE
     Dosage: 1.1 %
     Dates: start: 20190306
  20. FERROUS SULFATE [Concomitant]
     Active Substance: FERROUS SULFATE
     Dosage: 325 MG, DAILY (TAKE 1 TABLET BY MOUTH EVERY DAY)
     Route: 048
  21. GLATIRAMER [Concomitant]
     Active Substance: GLATIRAMER
     Dosage: 40 MG/ML
     Route: 058

REACTIONS (4)
  - Arthropathy [Recovering/Resolving]
  - Fatigue [Not Recovered/Not Resolved]
  - Osteoarthritis [Unknown]
  - Diarrhoea [Unknown]

NARRATIVE: CASE EVENT DATE: 20190910
